FAERS Safety Report 7594793-2 (Version None)
Quarter: 2011Q3

REPORT INFORMATION
  Report Type: 
  Country: None (occurrence: None)
  Receive Date: 20110707
  Receipt Date: 20110629
  Transmission Date: 20111222
  Serious: Yes (Other)
  Sender: FDA-Public Use
  Company Number: FR-JNJFOC-20110610916

PATIENT
  Age: 41 Year
  Sex: Male
  Weight: 60 kg

DRUGS (5)
  1. TRUVADA [Suspect]
     Indication: HIV INFECTION
     Route: 048
     Dates: start: 20110314, end: 20110606
  2. TMC114 [Suspect]
     Indication: HIV INFECTION
     Route: 048
     Dates: start: 20110314, end: 20110606
  3. DAFALGAN CODEINE [Concomitant]
     Indication: PAIN
     Route: 048
     Dates: start: 20110419
  4. NORVIR [Suspect]
     Indication: HIV INFECTION
     Route: 048
     Dates: start: 20110314, end: 20110606
  5. COTRIM [Concomitant]
     Indication: OPPORTUNISTIC INFECTION PROPHYLAXIS
     Route: 048
     Dates: start: 20110118

REACTIONS (1)
  - GAMMA-GLUTAMYLTRANSFERASE INCREASED [None]
